FAERS Safety Report 7757104-5 (Version None)
Quarter: 2011Q3

REPORT INFORMATION
  Report Type: 
  Country: None (occurrence: None)
  Receive Date: 20110916
  Receipt Date: 20110907
  Transmission Date: 20111222
  Serious: Yes (Hospitalization)
  Sender: FDA-Public Use
  Company Number: FR-BRISTOL-MYERS SQUIBB COMPANY-16041626

PATIENT
  Age: 75 Year
  Sex: Male

DRUGS (8)
  1. IRBESARTAN + HYDROCHLOROTHIAZIDE [Suspect]
     Indication: CARDIOMYOPATHY
     Dosage: 1DF=COAPROVEL 300 MG/12.5 MG
     Route: 048
  2. IMOVANE [Concomitant]
  3. ISUPREL [Suspect]
  4. PRAVASTATIN [Concomitant]
  5. ASPIRIN [Concomitant]
  6. METFORMIN HCL [Concomitant]
  7. TENORMIN [Suspect]
  8. LEXOMIL [Concomitant]

REACTIONS (6)
  - FACE INJURY [None]
  - CARDIO-RESPIRATORY ARREST [None]
  - ATRIOVENTRICULAR BLOCK [None]
  - RENAL FAILURE [None]
  - CARDIAC FAILURE [None]
  - SYNCOPE [None]
